FAERS Safety Report 10600228 (Version 6)
Quarter: 2015Q4

REPORT INFORMATION
  Report Type: Spontaneous
  Country: FR (occurrence: FR)
  Receive Date: 20141122
  Receipt Date: 20151014
  Transmission Date: 20160304
  Serious: Yes (Hospitalization, Other)
  Sender: FDA-Public Use
  Company Number: FR-009507513-1311FRA007885

PATIENT
  Sex: Female
  Weight: 45 kg

DRUGS (1)
  1. NEXPLANON [Suspect]
     Active Substance: ETONOGESTREL
     Indication: CONTRACEPTION
     Dosage: UNK, IN THE LEFT ARM
     Route: 059
     Dates: start: 201301, end: 20141020

REACTIONS (21)
  - Medical device complication [Recovered/Resolved]
  - Amenorrhoea [Unknown]
  - Libido decreased [Unknown]
  - Pleural effusion [Unknown]
  - Affective disorder [Unknown]
  - Needle issue [Unknown]
  - Surgery [Recovered/Resolved]
  - Pneumothorax [Recovered/Resolved]
  - Chest pain [Unknown]
  - Device deployment issue [Recovered/Resolved]
  - Menstruation irregular [Unknown]
  - Metrorrhagia [Recovered/Resolved]
  - Vaginal haemorrhage [Recovered/Resolved]
  - Subcutaneous emphysema [Recovered/Resolved]
  - Partial lung resection [Recovering/Resolving]
  - Device dislocation [Recovered/Resolved]
  - Device difficult to use [Unknown]
  - Implant site haematoma [Unknown]
  - Device embolisation [Recovered/Resolved]
  - Hair growth abnormal [Unknown]
  - Hot flush [Unknown]

NARRATIVE: CASE EVENT DATE: 201301
